FAERS Safety Report 19002274 (Version 3)
Quarter: 2021Q2

REPORT INFORMATION
  Report Type: Spontaneous
  Country: US (occurrence: US)
  Receive Date: 20210312
  Receipt Date: 20210427
  Transmission Date: 20210717
  Serious: No
  Sender: FDA-Public Use
  Company Number: US-KARYOPHARM-2021KPT000053

PATIENT

DRUGS (2)
  1. DEXAMETHASONE. [Concomitant]
     Active Substance: DEXAMETHASONE
     Indication: PLASMA CELL MYELOMA
  2. XPOVIO [Suspect]
     Active Substance: SELINEXOR
     Indication: PLASMA CELL MYELOMA
     Dosage: 60 MG, WEEKLY
     Route: 048
     Dates: start: 20201231, end: 20210315

REACTIONS (7)
  - Nausea [Unknown]
  - Abdominal pain upper [Unknown]
  - Platelet count decreased [Not Recovered/Not Resolved]
  - Plasma cell myeloma [Unknown]
  - Dyspnoea [Not Recovered/Not Resolved]
  - Hyponatraemia [Not Recovered/Not Resolved]
  - Fatigue [Not Recovered/Not Resolved]

NARRATIVE: CASE EVENT DATE: 20210112
